FAERS Safety Report 18573963 (Version 1)
Quarter: 2020Q4

REPORT INFORMATION
  Report Type: Spontaneous
  Country: US (occurrence: US)
  Receive Date: 20201202
  Receipt Date: 20201202
  Transmission Date: 20210114
  Serious: No
  Sender: FDA-Public Use
  Company Number: None

PATIENT
  Age: 74 Year
  Sex: Male
  Weight: 56 kg

DRUGS (1)
  1. CARBOPLATIN (CARBOPLATIN 150MG/VIL INJ [Suspect]
     Active Substance: CARBOPLATIN
     Indication: LARYNGEAL CANCER STAGE 0
     Dates: start: 20200818, end: 20201019

REACTIONS (5)
  - Mental status changes [None]
  - Dyspnoea [None]
  - Hypotension [None]
  - Tachycardia [None]
  - Respiratory depression [None]

NARRATIVE: CASE EVENT DATE: 20201019
